FAERS Safety Report 9741062 (Version 2)
Quarter: 2013Q4

REPORT INFORMATION
  Report Type: Report from Study
  Country: JP (occurrence: JP)
  Receive Date: 20131209
  Receipt Date: 20131209
  Transmission Date: 20140711
  Serious: Yes (Hospitalization, Other)
  Sender: FDA-Public Use
  Company Number: JP-SA-THYM-1002694

PATIENT
  Age: 33 Year
  Sex: Male
  Weight: 78.9 kg

DRUGS (30)
  1. THYMOGLOBULINE [Suspect]
     Indication: KIDNEY TRANSPLANT REJECTION
     Dosage: 1.5 MG/KG, QD
     Route: 042
     Dates: start: 20110804, end: 20110805
  2. THYMOGLOBULINE [Suspect]
     Indication: KIDNEY TRANSPLANT REJECTION
     Route: 042
     Dates: start: 20110813, end: 20110815
  3. METHYLPREDNISOLONE SODIUM SUCCINATE [Concomitant]
     Indication: KIDNEY TRANSPLANT REJECTION
     Dosage: 500 MG, QD
     Route: 042
     Dates: start: 20110727, end: 20110728
  4. METHYLPREDNISOLONE SODIUM SUCCINATE [Concomitant]
     Indication: IMMUNOSUPPRESSION
     Dosage: 500 MG, QD
     Route: 042
     Dates: start: 20110727, end: 20110728
  5. METHYLPREDNISOLONE SODIUM SUCCINATE [Concomitant]
     Indication: KIDNEY TRANSPLANT REJECTION
     Dosage: 160 MG, UNK
     Dates: start: 20110804
  6. METHYLPREDNISOLONE SODIUM SUCCINATE [Concomitant]
     Indication: IMMUNOSUPPRESSION
     Dosage: 160 MG, UNK
     Dates: start: 20110804
  7. IMMUNOGLOBULIN HUMAN NORMAL [Concomitant]
     Indication: KIDNEY TRANSPLANT REJECTION
     Dosage: 15 G, QD
     Dates: start: 20110727
  8. GUSPERIMUS HYDROCHLORIDE [Concomitant]
     Indication: KIDNEY TRANSPLANT REJECTION
     Dosage: 400 MG, QD
     Route: 042
     Dates: start: 20110802, end: 20110803
  9. GUSPERIMUS HYDROCHLORIDE [Concomitant]
     Indication: IMMUNOSUPPRESSION
     Dosage: 400 MG, QD
     Route: 042
     Dates: start: 20110802, end: 20110803
  10. TACROLIMUS [Concomitant]
     Indication: TRANSPLANT REJECTION
     Dosage: UNK
     Dates: start: 20100902
  11. TACROLIMUS [Concomitant]
     Indication: IMMUNOSUPPRESSION
     Dosage: UNK
     Dates: start: 20100902
  12. TACROLIMUS [Concomitant]
     Indication: TRANSPLANT REJECTION
     Dates: start: 2011
  13. TACROLIMUS [Concomitant]
     Indication: IMMUNOSUPPRESSION
     Dates: start: 2011
  14. MYCOPHENOLATE MOFETIL [Concomitant]
     Indication: TRANSPLANT REJECTION
     Dosage: 250 MG, BID
     Dates: start: 20100902
  15. MYCOPHENOLATE MOFETIL [Concomitant]
     Indication: TRANSPLANT REJECTION
     Route: 048
     Dates: start: 20110804
  16. CALCIUM POLYSTYRENE SULFONATE [Concomitant]
     Indication: HYPERKALAEMIA
     Dosage: 5 G, TID
     Dates: start: 20110812
  17. CALCIUM POLYSTYRENE SULFONATE [Concomitant]
     Indication: HYPERKALAEMIA
     Dates: start: 20110804, end: 20110804
  18. BENZBROMARONE [Concomitant]
     Indication: HYPERURICAEMIA
     Dosage: 50 MG, QD
     Dates: start: 20110804, end: 20110804
  19. LANSOPRAZOLE [Concomitant]
     Dosage: 15 MG, QD
     Dates: start: 20110804, end: 20110804
  20. OLMESARTAN MEDOXOMIL [Concomitant]
     Indication: HYPERTENSION
     Dosage: 20 MG, QD
     Dates: start: 20110804
  21. SODIUM CHLORIDE [Concomitant]
     Indication: PRODUCT USED FOR UNKNOWN INDICATION
     Dosage: 100 ML, UNK
     Dates: start: 20110804
  22. PARACETAMOL [Concomitant]
     Dosage: UNK
     Dates: start: 20110804
  23. DIPHENHYDRAMINE HYDROCHLORIDE [Concomitant]
     Indication: PRODUCT USED FOR UNKNOWN INDICATION
     Dosage: UNK
     Route: 048
  24. CALONAL [Concomitant]
     Indication: PROPHYLAXIS
  25. DIPHENHYDRAMINE [Concomitant]
     Indication: PROPHYLAXIS
  26. MEDROL [Concomitant]
     Indication: IMMUNOSUPPRESSION
     Route: 048
     Dates: start: 2011
  27. BASILIXIMAB [Concomitant]
     Indication: IMMUNOSUPPRESSION
     Route: 042
     Dates: start: 20110902, end: 20110902
  28. BASILIXIMAB [Concomitant]
     Indication: IMMUNOSUPPRESSION
     Route: 042
     Dates: start: 20110906, end: 20110906
  29. RITUXAN [Concomitant]
     Indication: IMMUNOSUPPRESSION
     Route: 042
     Dates: start: 20100928, end: 20100928
  30. MOXIFLOXACIN HYDROCHLORIDE [Concomitant]
     Indication: PROPHYLAXIS
     Dosage: 400 MG, QD
     Dates: start: 20110728, end: 20110811

REACTIONS (4)
  - Phlebitis [Recovered/Resolved]
  - Blood pressure decreased [Recovered/Resolved]
  - Chills [Recovered/Resolved]
  - Pyrexia [Recovered/Resolved]
